FAERS Safety Report 8461710-2 (Version None)
Quarter: 2012Q2

REPORT INFORMATION
  Report Type: 
  Country: None (occurrence: None)
  Receive Date: 20120323
  Receipt Date: 20111006
  Transmission Date: 20120825
  Serious: Yes (Hospitalization)
  Sender: FDA-Public Use
  Company Number: 163-21880-11100996

PATIENT
  Age: 67 Year
  Sex: Male

DRUGS (2)
  1. REVLIMID [Suspect]
     Indication: MULTIPLE MYELOMA
     Dosage: 25 MG, 1 IN 1 D, PO 15 MG, DAILY FOR 21 DAYS THEN 7 DAYS OFF, PO
     Route: 048
     Dates: start: 20110715
  2. REVLIMID [Suspect]
     Indication: MULTIPLE MYELOMA
     Dosage: 25 MG, 1 IN 1 D, PO 15 MG, DAILY FOR 21 DAYS THEN 7 DAYS OFF, PO
     Route: 048
     Dates: start: 20090709, end: 20100108

REACTIONS (2)
  - BLOOD COUNT ABNORMAL [None]
  - PNEUMONIA [None]
